FAERS Safety Report 5509046-3 (Version None)
Quarter: 2007Q4

REPORT INFORMATION
  Report Type: 
  Country: None (occurrence: None)
  Receive Date: 20071107
  Receipt Date: 20071030
  Transmission Date: 20080405
  Serious: Yes (Death)
  Sender: FDA-Public Use
  Company Number: PHBS2007JP17712

PATIENT
  Age: 90 Year
  Sex: Female

DRUGS (6)
  1. RITALIN [Suspect]
     Indication: DEPRESSION
     Dosage: 10 MG/DAY
     Route: 048
     Dates: start: 20070130, end: 20070909
  2. TORSEMIDE [Concomitant]
     Indication: CARDIAC FAILURE CONGESTIVE
     Dosage: 1 DF/DAY
     Route: 048
     Dates: end: 20070909
  3. MELBIN [Concomitant]
     Indication: DIABETES MELLITUS
     Dosage: 2 DF/DAY
     Route: 048
     Dates: end: 20070909
  4. AMARYL [Concomitant]
     Indication: DIABETES MELLITUS
     Dosage: 2 DF/DAY
     Route: 048
     Dates: end: 20070909
  5. HERBESSOR R [Concomitant]
     Indication: ARRHYTHMIA
     Dosage: 1 DF/DAY
     Route: 048
     Dates: end: 20070909
  6. MUCOSOLVAN [Concomitant]
     Indication: PRODUCTIVE COUGH
     Dosage: 1 DF/DAY
     Route: 048
     Dates: end: 20070909

REACTIONS (2)
  - PNEUMONIA [None]
  - RESPIRATORY FAILURE [None]
